FAERS Safety Report 10237203 (Version 1)
Quarter: 2014Q1

REPORT INFORMATION
  Report Type: Spontaneous
  Country: US (occurrence: None)
  Receive Date: 20140306
  Receipt Date: 20140306
  Transmission Date: 20141002
  Serious: Yes (Other)
  Sender: FDA-Public Use
  Company Number: 163-21880-13103655

PATIENT
  Age: 85 Year
  Sex: Male

DRUGS (4)
  1. REVLIMIB (LENALIDOMIDE) (10 MILLIGRAM, CAPSULES) [Suspect]
     Indication: PLASMA CELL MYELOMA
     Dosage: 10 MG, 21 IN 29 D, PO
     Route: 048
     Dates: start: 20130821, end: 20130909
  2. ZOMETA (ZOLEDRONIC ACID) [Concomitant]
  3. DENOSUMAB (DENOSUMAB) (RANMARK)) [Concomitant]
  4. DECADRON (DEXAMETHASONE) [Concomitant]

REACTIONS (2)
  - Haemoglobin decreased [None]
  - Dermatitis allergic [None]
